FAERS Safety Report 7072735-6 (Version None)
Quarter: 2010Q4

REPORT INFORMATION
  Report Type: 
  Country: None (occurrence: None)
  Receive Date: 20101029
  Receipt Date: 20100305
  Transmission Date: 20110411
  Serious: No
  Sender: FDA-Public Use
  Company Number: A0848667A

PATIENT
  Age: 14 Year
  Sex: Male

DRUGS (2)
  1. ADVAIR DISKUS 100/50 [Suspect]
     Indication: ASTHMA
     Dosage: 1PUFF TWICE PER DAY
     Route: 055
     Dates: start: 20091101, end: 20100303
  2. ALBUTEROL [Concomitant]

REACTIONS (6)
  - CLAUSTROPHOBIA [None]
  - COUGH [None]
  - DIZZINESS [None]
  - IRRITABILITY [None]
  - SECRETION DISCHARGE [None]
  - WHEEZING [None]
